FAERS Safety Report 20649561 (Version 1)
Quarter: 2022Q1

REPORT INFORMATION
  Report Type: Spontaneous
  Country: PL (occurrence: PL)
  Receive Date: 20220329
  Receipt Date: 20220329
  Transmission Date: 20220424
  Serious: Yes (Other)
  Sender: FDA-Public Use
  Company Number: PL-AMGEN-POLSP2022026479

PATIENT
  Sex: Male

DRUGS (4)
  1. FLUOROURACIL [Suspect]
     Active Substance: FLUOROURACIL
     Indication: Adenocarcinoma of colon
     Dosage: UNK UNK, CYCLE
     Route: 065
     Dates: start: 20210415
  2. LEUCOVORIN [Suspect]
     Active Substance: LEUCOVORIN
     Indication: Adenocarcinoma of colon
     Dosage: UNK UNK, CYCLE
     Route: 065
     Dates: start: 20210415
  3. OXALIPLATIN [Suspect]
     Active Substance: OXALIPLATIN
     Indication: Adenocarcinoma of colon
     Dosage: UNK UNK, CYCLE
     Route: 065
     Dates: start: 20210415
  4. VECTIBIX [Suspect]
     Active Substance: PANITUMUMAB
     Indication: Adenocarcinoma of colon
     Dosage: UNK UNK, CYCLE(3 TREATMENT CYCLES)
     Route: 065
     Dates: start: 20210415, end: 20210604

REACTIONS (6)
  - Intestinal obstruction [Recovered/Resolved]
  - COVID-19 [Unknown]
  - General physical health deterioration [Unknown]
  - Adenocarcinoma of colon [Unknown]
  - Anaemia [Unknown]
  - Pyrexia [Unknown]

NARRATIVE: CASE EVENT DATE: 20210101
